FAERS Safety Report 8850628 (Version 2)
Quarter: 2012Q4

REPORT INFORMATION
  Report Type: 
  Country: JP (occurrence: JP)
  Receive Date: 20121019
  Receipt Date: 20121231
  Transmission Date: 20130627
  Serious: Yes (Hospitalization, Other)
  Sender: FDA-Public Use
  Company Number: JP-009507513-1210JPN006989

PATIENT
  Age: 77 Year
  Sex: Female

DRUGS (14)
  1. GASTER [Suspect]
     Indication: PROPHYLAXIS
     Dosage: 20 mg, qd
     Route: 048
     Dates: end: 20101229
  2. RHEUMATREX [Suspect]
     Indication: RHEUMATOID ARTHRITIS
     Dosage: 6 mg, qw
     Route: 048
     Dates: start: 2000, end: 2000
  3. RHEUMATREX [Suspect]
     Dosage: UNK
     Route: 048
     Dates: end: 201012
  4. ACTEMRA [Suspect]
     Indication: RHEUMATOID ARTHRITIS
     Dosage: UNK
     Route: 041
     Dates: start: 20090730
  5. ACTEMRA [Suspect]
     Dosage: UNK
     Route: 041
     Dates: start: 20101028, end: 20101125
  6. ACTEMRA [Suspect]
     Dosage: UNK
     Route: 041
     Dates: start: 2010, end: 201012
  7. ACTEMRA [Suspect]
     Dosage: UNK
     Route: 041
     Dates: start: 20110106, end: 20110706
  8. ACTEMRA [Suspect]
     Dosage: UNK
     Route: 041
     Dates: start: 20110810
  9. SUCRALFATE [Concomitant]
     Indication: PROPHYLAXIS
     Dosage: UNK
     Route: 048
  10. BENET [Concomitant]
     Indication: OSTEOPOROSIS
     Route: 048
  11. NABOAL [Concomitant]
     Indication: RHEUMATOID ARTHRITIS
     Dosage: UNK
     Route: 048
  12. HEPARIN [Concomitant]
     Indication: PULMONARY EMBOLISM
     Dosage: UNK
     Dates: start: 20091115, end: 20091118
  13. WARFARIN [Concomitant]
     Dosage: UNK
     Route: 048
     Dates: start: 20091118, end: 20091124
  14. SILECE [Concomitant]
     Indication: SEDATIVE THERAPY
     Dosage: UNK
     Dates: start: 20090820

REACTIONS (3)
  - Pancytopenia [Recovering/Resolving]
  - Gastric cancer [Recovering/Resolving]
  - Abscess [Recovered/Resolved]
